FAERS Safety Report 8579135-8 (Version None)
Quarter: 2012Q3

REPORT INFORMATION
  Report Type: 
  Country: None (occurrence: None)
  Receive Date: 20120808
  Receipt Date: 20120801
  Transmission Date: 20120928
  Serious: Yes (Hospitalization, Other)
  Sender: FDA-Public Use
  Company Number: KR-ABBOTT-12P-090-0928521-00

PATIENT
  Sex: Male
  Weight: 50 kg

DRUGS (9)
  1. PENTASA SR [Concomitant]
     Indication: PRODUCT USED FOR UNKNOWN INDICATION
     Dosage: 3000MG DAILY
     Route: 048
     Dates: start: 20000726
  2. PREDNISOLONE [Concomitant]
     Route: 048
     Dates: start: 20101112, end: 20110126
  3. METHOTREXATE [Concomitant]
     Indication: PRODUCT USED FOR UNKNOWN INDICATION
     Route: 048
     Dates: start: 20111020
  4. MUCOPECT [Concomitant]
     Indication: PRODUCTIVE COUGH
     Dosage: 15MG/2ML
     Dates: start: 20101221, end: 20101225
  5. PREDNISOLONE [Concomitant]
     Indication: PRODUCT USED FOR UNKNOWN INDICATION
     Dosage: 20 MG DAILY
     Route: 048
     Dates: start: 20011120, end: 20111214
  6. HUMIRA [Suspect]
     Dates: end: 20101206
  7. HUMIRA [Suspect]
     Indication: CROHN'S DISEASE
     Dosage: INDUCTION THERAPY
     Route: 058
     Dates: start: 20101117
  8. KOREA UNITED AZATHIOPRINE [Concomitant]
     Indication: PRODUCT USED FOR UNKNOWN INDICATION
     Dosage: 25 MG DAILY
     Route: 048
     Dates: start: 20000815, end: 20110928
  9. BIOFL 250 CAP. [Concomitant]
     Indication: GASTROINTESTINAL DISORDER
     Route: 048
     Dates: start: 20031125

REACTIONS (4)
  - SEROSITIS [None]
  - ILEAL FISTULA [None]
  - ABDOMINAL PAIN [None]
  - ABSCESS INTESTINAL [None]
